FAERS Safety Report 9155774 (Version 1)
Quarter: 2013Q1

REPORT INFORMATION
  Report Type: Spontaneous
  Country: RU (occurrence: RU)
  Receive Date: 20130311
  Receipt Date: 20130311
  Transmission Date: 20140127
  Serious: Yes (Other)
  Sender: FDA-Public Use
  Company Number: PHHY2013RU021505

PATIENT
  Sex: Male

DRUGS (3)
  1. AMLODIPINE [Suspect]
     Indication: HYPERTENSION
     Route: 048
  2. DIROTON [Concomitant]
     Indication: HYPERTENSION
  3. NOLIPREL [Concomitant]
     Indication: HYPERTENSION

REACTIONS (2)
  - Maculopathy [Not Recovered/Not Resolved]
  - Blindness [Not Recovered/Not Resolved]
